FAERS Safety Report 6137776-1 (Version None)
Quarter: 2009Q1

REPORT INFORMATION
  Report Type: 
  Country: None (occurrence: None)
  Receive Date: 20090326
  Receipt Date: 20090312
  Transmission Date: 20090719
  Serious: Yes (Other)
  Sender: FDA-Public Use
  Company Number: 2009AL001455

PATIENT
  Age: 86 Year
  Sex: Female

DRUGS (4)
  1. ACYCLOVIR [Suspect]
     Indication: HERPES ZOSTER
     Dosage: 400 MG Q5H; PO
     Route: 048
     Dates: start: 20090228, end: 20090306
  2. FUROSEMIDE [Concomitant]
  3. LANSOPRAZOLE [Concomitant]
  4. PARACETAMOL [Concomitant]

REACTIONS (2)
  - EMOTIONAL DISTRESS [None]
  - HALLUCINATIONS, MIXED [None]
